FAERS Safety Report 9476085 (Version 2)
Quarter: 2013Q3

REPORT INFORMATION
  Report Type: Spontaneous
  Country: SG (occurrence: SG)
  Receive Date: 20130826
  Receipt Date: 20130904
  Transmission Date: 20140515
  Serious: Yes (Other)
  Sender: FDA-Public Use
  Company Number: SG-ROCHE-1265773

PATIENT
  Age: 38 Year
  Sex: Female

DRUGS (2)
  1. HERCEPTIN [Suspect]
     Indication: HER-2 POSITIVE BREAST CANCER
     Route: 065
  2. TAXOTERE [Suspect]
     Indication: HER-2 POSITIVE BREAST CANCER
     Route: 042

REACTIONS (2)
  - Bradycardia [Not Recovered/Not Resolved]
  - Dyspnoea [Not Recovered/Not Resolved]
